FAERS Safety Report 20198485 (Version 2)
Quarter: 2022Q3

REPORT INFORMATION
  Report Type: Spontaneous
  Country: JP (occurrence: JP)
  Receive Date: 20211217
  Receipt Date: 20220829
  Transmission Date: 20221026
  Serious: Yes (Hospitalization)
  Sender: FDA-Public Use
  Company Number: JP-BAYER-2021A268163

PATIENT
  Age: 70 Year
  Sex: Male
  Weight: 62.5 kg

DRUGS (5)
  1. STIVARGA [Suspect]
     Active Substance: REGORAFENIB
     Indication: Hepatocellular carcinoma
     Dosage: DAILY DOSE 120 MG
     Route: 048
     Dates: start: 20210614, end: 20211108
  2. STIVARGA [Suspect]
     Active Substance: REGORAFENIB
     Indication: Hepatocellular carcinoma
     Dosage: DAILY DOSE 80 MG
     Dates: start: 20220105, end: 20220126
  3. URSO [Concomitant]
     Active Substance: URSODIOL
     Indication: Hepatic cirrhosis
     Dosage: DAILY DOSE 300 MG
     Route: 048
     Dates: start: 20180116
  4. LUNESTA [Concomitant]
     Active Substance: ESZOPICLONE
     Indication: Insomnia
     Dosage: DAILY DOSE 2 G
     Route: 048
     Dates: start: 20191209
  5. GASMOTIN [MOSAPRIDE CITRATE] [Concomitant]
     Indication: Chronic gastritis
     Dosage: DAILY DOSE 15 G
     Dates: start: 20190318

REACTIONS (5)
  - Oedema [Recovered/Resolved]
  - Ascites [Recovered/Resolved]
  - Hypoalbuminaemia [None]
  - Hypophagia [None]
  - Hepatic function abnormal [None]

NARRATIVE: CASE EVENT DATE: 20211108
